FAERS Safety Report 6510455-4 (Version None)
Quarter: 2009Q4

REPORT INFORMATION
  Report Type: 
  Country: None (occurrence: None)
  Receive Date: 20091222
  Receipt Date: 20091216
  Transmission Date: 20100525
  Serious: Yes (Hospitalization)
  Sender: FDA-Public Use
  Company Number: US-ELI_LILLY_AND_COMPANY-US200912003982

PATIENT
  Sex: Female

DRUGS (6)
  1. HUMALOG [Suspect]
     Indication: DIABETES MELLITUS
     Dosage: 16 U, 3/D
     Dates: start: 20090101
  2. HUMALOG [Suspect]
     Dosage: 16 U, 3/D
     Dates: start: 20090101
  3. METFORMIN HCL [Concomitant]
     Dosage: UNK, 2/D
  4. ASPIRIN [Concomitant]
  5. NIACIN [Concomitant]
  6. LANTUS [Concomitant]

REACTIONS (4)
  - ARTHRALGIA [None]
  - CELLULITIS [None]
  - MUSCULOSKELETAL STIFFNESS [None]
  - WRONG TECHNIQUE IN DRUG USAGE PROCESS [None]
